FAERS Safety Report 15856993 (Version 3)
Quarter: 2019Q1

REPORT INFORMATION
  Report Type: Spontaneous
  Country: HU (occurrence: HU)
  Receive Date: 20190123
  Receipt Date: 20190225
  Transmission Date: 20190417
  Serious: Yes (Other)
  Sender: FDA-Public Use
  Company Number: HU-SA-2017SA017356

PATIENT
  Age: 48 Year
  Sex: Female

DRUGS (12)
  1. CISPLATIN. [Suspect]
     Active Substance: CISPLATIN
     Dosage: UNK
     Route: 065
     Dates: start: 201202, end: 201207
  2. ETOPOSIDE. [Suspect]
     Active Substance: ETOPOSIDE
     Dosage: UNK
     Route: 065
     Dates: start: 201202, end: 201207
  3. FLUOROURACIL. [Suspect]
     Active Substance: FLUOROURACIL
     Indication: OVARIAN CANCER STAGE IV
     Dosage: UNK UNK,QCY
     Route: 065
     Dates: start: 2013
  4. IFOSFAMIDE. [Suspect]
     Active Substance: IFOSFAMIDE
     Indication: OVARIAN CANCER STAGE IV
     Dosage: UNK UNK, UNK
     Route: 065
     Dates: start: 201201
  5. CISPLATIN. [Suspect]
     Active Substance: CISPLATIN
     Indication: OVARIAN CANCER METASTATIC
     Dosage: UNK
     Route: 065
     Dates: start: 201201
  6. LEUCOVORIN CALCIUM. [Suspect]
     Active Substance: LEUCOVORIN CALCIUM
     Indication: OVARIAN CANCER STAGE IV
     Dosage: UNK
     Route: 065
  7. FOLINIC ACID [Suspect]
     Active Substance: LEUCOVORIN
     Indication: OVARIAN CANCER STAGE IV
     Dosage: UNK UNK,QCY
     Route: 065
  8. BEVACIZUMAB. [Suspect]
     Active Substance: BEVACIZUMAB
     Indication: OVARIAN CANCER STAGE IV
     Dosage: UNK
     Route: 065
  9. IFOSFAMIDE. [Suspect]
     Active Substance: IFOSFAMIDE
     Dosage: UNK
     Route: 065
     Dates: start: 201202, end: 201207
  10. OXALIPLATIN. [Suspect]
     Active Substance: OXALIPLATIN
     Indication: OVARIAN CANCER
     Dosage: UNK UNK,QCY
     Route: 065
     Dates: start: 2013
  11. CALCIUM FOLINATE [Suspect]
     Active Substance: LEUCOVORIN CALCIUM
     Indication: OVARIAN CANCER METASTATIC
     Dosage: UNK, UNK
     Route: 065
  12. ETOPOSIDE. [Suspect]
     Active Substance: ETOPOSIDE
     Indication: OVARIAN CANCER STAGE IV
     Dosage: UNK UNK, UNK
     Route: 065
     Dates: start: 201201

REACTIONS (26)
  - Thrombocytopenia [Recovered/Resolved]
  - Syncope [Unknown]
  - Platelet count decreased [Unknown]
  - Off label use [Unknown]
  - Therapeutic response unexpected [Unknown]
  - Disease progression [Unknown]
  - Renal failure [Unknown]
  - White blood cell count decreased [Unknown]
  - Asthenia [Unknown]
  - Feeling abnormal [Unknown]
  - Abdominal pain [Unknown]
  - Neutropenia [Recovered/Resolved]
  - Neuropathy peripheral [Unknown]
  - Product use in unapproved indication [Unknown]
  - Malaise [Unknown]
  - Neuralgia [Unknown]
  - Malaise [Unknown]
  - Dyspnoea exertional [Unknown]
  - Vomiting [Unknown]
  - Purpura [Recovered/Resolved]
  - Diarrhoea [Unknown]
  - Nausea [Unknown]
  - Fatigue [Unknown]
  - Drug effect incomplete [Unknown]
  - Haemoglobin decreased [Recovered/Resolved]
  - Fatigue [Unknown]

NARRATIVE: CASE EVENT DATE: 2012
